FAERS Safety Report 4836487-X (Version None)
Quarter: 2005Q4

REPORT INFORMATION
  Report Type: 
  Country: None (occurrence: None)
  Receive Date: 20051118
  Receipt Date: 20051107
  Transmission Date: 20060501
  Serious: Yes (Other)
  Sender: FDA-Public Use
  Company Number: 2005152825

PATIENT
  Age: 81 Year
  Sex: Female

DRUGS (8)
  1. HYDROXYZINE HCL [Suspect]
     Indication: PRURITUS
     Dosage: ORAL
     Route: 048
  2. ASPIRIN [Suspect]
     Indication: ILL-DEFINED DISORDER
     Dosage: 75 MG (75 MG, 1 IN 1 D), ORAL
     Route: 048
  3. EFFEXOR [Suspect]
     Indication: DEPRESSION
     Dosage: 225 MG (1 D), ORAL
     Route: 048
     Dates: start: 20040101
  4. GLIMEPIRIDE [Suspect]
     Indication: DIABETES MELLITUS
     Dosage: 1 MG (1 MG, 1 IN  1 D), ORAL
     Route: 048
  5. RAMIPRIL [Suspect]
     Indication: HYPERTENSION
     Dosage: 1.25 MG (1.25 MG, 1 IN 1 D), ORAL
     Route: 048
  6. SIMVASTATIN [Suspect]
     Indication: HYPERCHOLESTEROLAEMIA
     Dosage: 10 MG (10 MG, 1 IN 1 D), ORAL
     Route: 048
  7. PARACETAMOL (PARACETAMOL) [Concomitant]
  8. TEMAZEPAM [Concomitant]

REACTIONS (2)
  - MYOCARDIAL INFARCTION [None]
  - SINUS TACHYCARDIA [None]
